FAERS Safety Report 11030192 (Version 1)
Quarter: 2015Q2

REPORT INFORMATION
  Report Type: Spontaneous
  Country: US (occurrence: None)
  Receive Date: 20150413
  Receipt Date: 20150413
  Transmission Date: 20150821
  Serious: Yes (Other)
  Sender: FDA-Public Use
  Company Number: None

PATIENT
  Age: 35 Year
  Sex: Female
  Weight: 68.04 kg

DRUGS (2)
  1. MIRENA [Suspect]
     Active Substance: LEVONORGESTREL
     Indication: CONTRACEPTION
     Dosage: INSERTED IUD
  2. ADVIL/ PAMPRIN [Concomitant]

REACTIONS (8)
  - Activities of daily living impaired [None]
  - Anxiety [None]
  - Depression [None]
  - Mood swings [None]
  - Self-injurious ideation [None]
  - Impaired driving ability [None]
  - Disturbance in attention [None]
  - Abdominal distension [None]

NARRATIVE: CASE EVENT DATE: 20150406
